FAERS Safety Report 6202271-8 (Version None)
Quarter: 2009Q2

REPORT INFORMATION
  Report Type: 
  Country: None (occurrence: None)
  Receive Date: 20090526
  Receipt Date: 20090513
  Transmission Date: 20091009
  Serious: Yes (Other)
  Sender: FDA-Public Use
  Company Number: US-BIOGENIDEC-2009BI007943

PATIENT
  Age: 37 Year
  Sex: Female
  Weight: 66 kg

DRUGS (8)
  1. TYSABRI [Suspect]
     Indication: MULTIPLE SCLEROSIS
     Dosage: BASED ON LMP
     Route: 042
     Dates: start: 20071023, end: 20090115
  2. ADDERALL 10 [Concomitant]
  3. CYMBALTA [Concomitant]
  4. NEURONTIN [Concomitant]
  5. VITAMIN TAB [Concomitant]
  6. PROGESTERONE [Concomitant]
  7. DITROPAN XL [Concomitant]
     Route: 048
  8. MOTRIN [Concomitant]
     Route: 048

REACTIONS (2)
  - ABORTION SPONTANEOUS [None]
  - PREGNANCY [None]
